FAERS Safety Report 7677902-6 (Version None)
Quarter: 2011Q3

REPORT INFORMATION
  Report Type: 
  Country: None (occurrence: None)
  Receive Date: 20110811
  Receipt Date: 20110805
  Transmission Date: 20111222
  Serious: Yes (Life-Threatening, Hospitalization, Disabling, Other)
  Sender: FDA-Public Use
  Company Number: US-MERCK-1106USA01945

PATIENT
  Age: 59 Year
  Sex: Female
  Weight: 103 kg

DRUGS (6)
  1. VITAMIN D (UNSPECIFIED) [Concomitant]
     Route: 065
  2. GLUCOPHAGE [Concomitant]
     Route: 048
  3. JANUVIA [Suspect]
     Indication: TYPE 2 DIABETES MELLITUS
     Route: 048
     Dates: start: 20101001, end: 20110404
  4. ASPIRIN [Concomitant]
     Route: 065
  5. SIMVASTATIN [Concomitant]
     Route: 065
  6. ENALAPRIL MALEATE [Concomitant]
     Route: 065

REACTIONS (2)
  - PANCREATITIS [None]
  - PANCREATIC PSEUDOCYST [None]
